FAERS Safety Report 6699929-3 (Version None)
Quarter: 2010Q2

REPORT INFORMATION
  Report Type: 
  Country: None (occurrence: None)
  Receive Date: 20100428
  Receipt Date: 20100413
  Transmission Date: 20101027
  Serious: Yes (Disabling, Other)
  Sender: FDA-Public Use
  Company Number: PHHY2010US26308

PATIENT
  Sex: Male

DRUGS (11)
  1. RECLAST [Suspect]
     Indication: OSTEOPOROSIS
     Dosage: UNK
     Route: 042
  2. TYLENOL-500 [Suspect]
  3. ABILIFY [Concomitant]
  4. LITHIUM CARBONATE [Concomitant]
  5. ZOLOFT [Concomitant]
  6. ZOCOR [Concomitant]
  7. EFFEXOR [Concomitant]
  8. TESTOSTERONE [Concomitant]
  9. LISINOPRIL [Concomitant]
  10. MIRAPEX [Concomitant]
  11. BENZTROPINE MESYLATE [Concomitant]

REACTIONS (11)
  - BONE PAIN [None]
  - COORDINATION ABNORMAL [None]
  - DIZZINESS [None]
  - ERYTHEMA [None]
  - HEADACHE [None]
  - HOT FLUSH [None]
  - MYALGIA [None]
  - PAIN [None]
  - PYREXIA [None]
  - TREMOR [None]
  - VISION BLURRED [None]
